FAERS Safety Report 20787250 (Version 1)
Quarter: 2022Q2

REPORT INFORMATION
  Report Type: Spontaneous
  Country: US (occurrence: US)
  Receive Date: 20220505
  Receipt Date: 20220505
  Transmission Date: 20220721
  Serious: No
  Sender: FDA-Public Use
  Company Number: US-BRISTOL-MYERS SQUIBB COMPANY-2022-018678

PATIENT
  Age: 84 Year
  Sex: Female
  Weight: 43 kg

DRUGS (1)
  1. POMALYST [Suspect]
     Active Substance: POMALIDOMIDE
     Indication: Plasma cell myeloma
     Dosage: FREQUENCY:2W ,1 W OFF
     Route: 048
     Dates: start: 20210801

REACTIONS (3)
  - Dehydration [Unknown]
  - Diarrhoea [Unknown]
  - Off label use [Unknown]
